FAERS Safety Report 5525114-4 (Version None)
Quarter: 2007Q4

REPORT INFORMATION
  Report Type: 
  Country: None (occurrence: None)
  Receive Date: 20071119
  Receipt Date: 20071106
  Transmission Date: 20080405
  Serious: No
  Sender: FDA-Public Use
  Company Number: CERZ-11879

PATIENT
  Age: 73 Year
  Sex: Male

DRUGS (4)
  1. CEREZYME [Suspect]
     Indication: GAUCHER'S DISEASE
     Dosage: 60 U/KG Q2WKS IV
     Route: 042
  2. CEREZYME [Suspect]
     Indication: GAUCHER'S DISEASE
     Dosage: 1 U/KG QWK IV
     Route: 042
  3. CEREZYME [Suspect]
     Indication: GAUCHER'S DISEASE
     Dosage: 1 U/KG Q2WK IV
     Route: 042
  4. CEREZYME [Suspect]
     Indication: GAUCHER'S DISEASE
     Dosage: 0.5 U/KG  IV
     Route: 042

REACTIONS (1)
  - SPLENOMEGALY [None]
